FAERS Safety Report 4803804-6 (Version None)
Quarter: 2005Q4

REPORT INFORMATION
  Report Type: 
  Country: None (occurrence: None)
  Receive Date: 20051019
  Receipt Date: 20050701
  Transmission Date: 20060501
  Serious: Yes (Hospitalization, Disabling)
  Sender: FDA-Public Use
  Company Number: US-MERCK-0507USA00486

PATIENT
  Age: 37 Year
  Sex: Female
  Weight: 114 kg

DRUGS (2)
  1. VIOXX [Suspect]
     Indication: ARTHRITIS
     Route: 048
     Dates: start: 19990101, end: 20040101
  2. MOTRIN [Concomitant]
     Route: 065
     Dates: start: 19990101, end: 20050101

REACTIONS (4)
  - BLOOD CHOLESTEROL INCREASED [None]
  - CARDIAC MURMUR [None]
  - DEPRESSION [None]
  - MYOCARDIAL INFARCTION [None]
